FAERS Safety Report 16248781 (Version 1)
Quarter: 2019Q2

REPORT INFORMATION
  Report Type: Spontaneous
  Country: US (occurrence: US)
  Receive Date: 20190429
  Receipt Date: 20190429
  Transmission Date: 20190711
  Serious: Yes (Death, Other)
  Sender: FDA-Public Use
  Company Number: US-ROCHE-2307575

PATIENT
  Age: 15 Year
  Sex: Female

DRUGS (22)
  1. AZATHIOPRINE. [Suspect]
     Active Substance: AZATHIOPRINE
     Indication: ANTIFUNGAL PROPHYLAXIS
     Route: 065
  2. PENTAMIDINE [Concomitant]
     Active Substance: PENTAMIDINE
     Indication: ANTIFUNGAL PROPHYLAXIS
     Route: 042
  3. IMMUNOGLOBULIN G HUMAN [Suspect]
     Active Substance: HUMAN IMMUNOGLOBULIN G
     Indication: PRODUCT USED FOR UNKNOWN INDICATION
     Route: 042
  4. CALCIUM GLUCONATE. [Concomitant]
     Active Substance: CALCIUM GLUCONATE
     Indication: HYPERKALAEMIA
  5. INSULIN [Concomitant]
     Active Substance: INSULIN NOS
     Indication: HYPERKALAEMIA
  6. KAYEXALATE [Concomitant]
     Active Substance: SODIUM POLYSTYRENE SULFONATE
     Indication: HYPERKALAEMIA
  7. LOSARTAN. [Concomitant]
     Active Substance: LOSARTAN
     Indication: HYPERTENSION
  8. DOXAZOSIN [Concomitant]
     Active Substance: DOXAZOSIN\DOXAZOSIN MESYLATE
     Indication: HYPERTENSION
  9. CYCLOPHOSPHAMIDE. [Suspect]
     Active Substance: CYCLOPHOSPHAMIDE
     Indication: GOODPASTURE^S SYNDROME
     Dosage: 2 DOSES 1 WEEK APART
     Route: 065
  10. GLUCOSE [Concomitant]
     Active Substance: DEXTROSE
     Indication: HYPERKALAEMIA
  11. SODIUM BICARBONATE. [Concomitant]
     Active Substance: SODIUM BICARBONATE
     Indication: HYPERKALAEMIA
  12. RITUXIMAB. [Suspect]
     Active Substance: RITUXIMAB
     Indication: GOODPASTURE^S SYNDROME
     Dosage: 2 DOSES
     Route: 042
  13. RITUXIMAB. [Suspect]
     Active Substance: RITUXIMAB
     Indication: IMMUNODEFICIENCY COMMON VARIABLE
  14. PREDNISONE. [Suspect]
     Active Substance: PREDNISONE
     Indication: ANTIFUNGAL PROPHYLAXIS
     Route: 065
  15. AMLODIPINE [Concomitant]
     Active Substance: AMLODIPINE BESYLATE
     Indication: HYPERTENSION
  16. LABETALOL [Concomitant]
     Active Substance: LABETALOL\LABETALOL HYDROCHLORIDE
     Indication: HYPERTENSION
  17. CLONIDINE. [Concomitant]
     Active Substance: CLONIDINE
     Indication: HYPERTENSION
  18. METHYLPREDNISOLONE. [Suspect]
     Active Substance: METHYLPREDNISOLONE
     Indication: IMMUNODEFICIENCY COMMON VARIABLE
     Dosage: 10MG/KG/DOSE
     Route: 042
  19. METHYLPREDNISOLONE. [Suspect]
     Active Substance: METHYLPREDNISOLONE
     Indication: GOODPASTURE^S SYNDROME
  20. CYCLOPHOSPHAMIDE. [Suspect]
     Active Substance: CYCLOPHOSPHAMIDE
     Indication: IMMUNODEFICIENCY COMMON VARIABLE
     Dosage: 2 DOSES 1 WEEK APART
     Route: 065
  21. PREDNISONE. [Suspect]
     Active Substance: PREDNISONE
     Route: 065
  22. ALBUTEROL [SALBUTAMOL] [Concomitant]
     Active Substance: ALBUTEROL
     Indication: HYPERKALAEMIA

REACTIONS (7)
  - Meningoencephalitis viral [Unknown]
  - Micrococcal sepsis [Unknown]
  - Hypertensive encephalopathy [Unknown]
  - Lower respiratory tract infection [Fatal]
  - Otitis media [Unknown]
  - Urinary tract infection fungal [Unknown]
  - Cytomegalovirus viraemia [Unknown]
